FAERS Safety Report 6741109-7 (Version None)
Quarter: 2010Q2

REPORT INFORMATION
  Report Type: 
  Country: None (occurrence: None)
  Receive Date: 20100526
  Receipt Date: 20100518
  Transmission Date: 20101027
  Serious: Yes (Hospitalization)
  Sender: FDA-Public Use
  Company Number: JP-JNJFOC-20100508089

PATIENT
  Sex: Female

DRUGS (3)
  1. FLORID ORAL GEL [Suspect]
     Route: 049
  2. FLORID ORAL GEL [Suspect]
     Indication: ORAL CANDIDIASIS
     Dosage: 2% FOR 4 DAYS
     Route: 049
  3. UNKNOWN MEDICATION [Concomitant]

REACTIONS (4)
  - ABDOMINAL PAIN [None]
  - LIP SWELLING [None]
  - MELAENA [None]
  - ORAL PAIN [None]
